FAERS Safety Report 17467802 (Version 1)
Quarter: 2020Q1

REPORT INFORMATION
  Report Type: Spontaneous
  Country: FR (occurrence: FR)
  Receive Date: 20200227
  Receipt Date: 20200227
  Transmission Date: 20200409
  Serious: Yes (Other)
  Sender: FDA-Public Use
  Company Number: FR-SA-2020SA046480

PATIENT
  Age: 35 Year
  Sex: Female

DRUGS (2)
  1. AUBAGIO [Concomitant]
     Active Substance: TERIFLUNOMIDE
  2. DUPIXENT [Suspect]
     Active Substance: DUPILUMAB
     Indication: DERMATITIS ATOPIC
     Dosage: UNK
     Dates: start: 201901

REACTIONS (7)
  - Hypotension [Unknown]
  - Impaired healing [Unknown]
  - Hypoglycaemia [Unknown]
  - Syncope [Unknown]
  - Malaise [Unknown]
  - Face injury [Unknown]
  - Hypertrophic scar [Unknown]

NARRATIVE: CASE EVENT DATE: 202001
